FAERS Safety Report 7691602-8 (Version None)
Quarter: 2011Q3

REPORT INFORMATION
  Report Type: 
  Country: None (occurrence: None)
  Receive Date: 20110818
  Receipt Date: 20110809
  Transmission Date: 20111222
  Serious: Yes (Hospitalization, Other)
  Sender: FDA-Public Use
  Company Number: US-BAYER-2011-004894

PATIENT
  Age: 24 Year
  Sex: Female
  Weight: 131.52 kg

DRUGS (3)
  1. YASMIN [Suspect]
     Indication: CONTRACEPTION
     Dosage: UNK
     Dates: start: 20040601, end: 20060101
  2. IBUPROFEN [Concomitant]
     Indication: ANALGESIC THERAPY
     Dosage: 1-2 , PRN
  3. SYNTHROID [Concomitant]
     Indication: THYROID DISORDER
     Dosage: UNK
     Dates: start: 20090101

REACTIONS (4)
  - GALLBLADDER DISORDER [None]
  - INJURY [None]
  - EMOTIONAL DISTRESS [None]
  - PAIN [None]
